FAERS Safety Report 19646428 (Version 2)
Quarter: 2021Q3

REPORT INFORMATION
  Report Type: Spontaneous
  Country: BE (occurrence: BE)
  Receive Date: 20210802
  Receipt Date: 20210816
  Transmission Date: 20211014
  Serious: Yes (Other)
  Sender: FDA-Public Use
  Company Number: BE-GLAXOSMITHKLINE-BECH2021049720

PATIENT
  Sex: Female

DRUGS (3)
  1. PANTOMED (PANTOPRAZOLE) [Concomitant]
     Active Substance: PANTOPRAZOLE
     Indication: PRODUCT USED FOR UNKNOWN INDICATION
     Dosage: 3 DF
     Route: 065
  2. DAFALGAN FORTE [Concomitant]
     Active Substance: ACETAMINOPHEN
     Indication: HIP SURGERY
     Dosage: 4 DF, QD
     Route: 065
  3. DICLOFENAC [Suspect]
     Active Substance: DICLOFENAC
     Indication: PRODUCT USED FOR UNKNOWN INDICATION
     Dosage: 3 DF, QD
     Route: 065

REACTIONS (4)
  - Gastric ulcer [Unknown]
  - Faeces discoloured [Unknown]
  - Gastric haemorrhage [Unknown]
  - Anaemia [Unknown]
